FAERS Safety Report 12352816 (Version 3)
Quarter: 2016Q2

REPORT INFORMATION
  Report Type: Spontaneous
  Country: US (occurrence: US)
  Receive Date: 20160510
  Receipt Date: 20160628
  Transmission Date: 20160815
  Serious: Yes (Other)
  Sender: FDA-Public Use
  Company Number: US-BAYER-2016-085232

PATIENT
  Age: 61 Year
  Sex: Female

DRUGS (4)
  1. CLIMARA [Suspect]
     Active Substance: ESTRADIOL
     Indication: HORMONE REPLACEMENT THERAPY
     Dosage: UNK
     Dates: start: 199905, end: 2001
  2. PREDNISONE. [Suspect]
     Active Substance: PREDNISONE
  3. PROPOFOL. [Suspect]
     Active Substance: PROPOFOL
  4. LYRICA [Suspect]
     Active Substance: PREGABALIN

REACTIONS (17)
  - Abnormal loss of weight [None]
  - Agitation [None]
  - Anaphylactic shock [Recovered/Resolved]
  - Anxiety [None]
  - Adrenal disorder [None]
  - Postoperative wound infection [None]
  - Middle insomnia [None]
  - Post procedural haemorrhage [None]
  - Sphincter of Oddi dysfunction [None]
  - Immunodeficiency [None]
  - Swollen tongue [None]
  - Mood altered [None]
  - Asthma [None]
  - Alopecia [None]
  - Hypersensitivity [None]
  - Urticaria [None]
  - Dysphagia [None]

NARRATIVE: CASE EVENT DATE: 1999
